FAERS Safety Report 4293009-2 (Version None)
Quarter: 2004Q1

REPORT INFORMATION
  Report Type: 
  Country: None (occurrence: None)
  Receive Date: 20040212
  Receipt Date: 20030811
  Transmission Date: 20041129
  Serious: No
  Sender: FDA-Public Use
  Company Number: US-GLAXOSMITHKLINE-A0420604A

PATIENT
  Sex: Female

DRUGS (2)
  1. PAXIL [Suspect]
     Dosage: 20MG PER DAY
     Route: 048
  2. WELLBUTRIN SR [Suspect]
     Indication: SEXUAL DYSFUNCTION
     Dosage: 100MG PER DAY
     Route: 048

REACTIONS (4)
  - DRUG INTERACTION [None]
  - MIGRAINE [None]
  - NAUSEA [None]
  - VOMITING [None]
